FAERS Safety Report 7900960-8 (Version None)
Quarter: 2011Q4

REPORT INFORMATION
  Report Type: 
  Country: None (occurrence: None)
  Receive Date: 20111104
  Receipt Date: 20111021
  Transmission Date: 20120403
  Serious: Yes (Hospitalization, Other)
  Sender: FDA-Public Use
  Company Number: VAL_00636_2011

PATIENT
  Age: 64 Year
  Sex: Female
  Weight: 36 kg

DRUGS (2)
  1. CARBAMAZEPINE [Suspect]
     Indication: BEHAVIOURAL AND PSYCHIATRIC SYMPTOMS OF DEMENTIA
     Dosage: (100 MG TID)
  2. OLANZAPINE [Suspect]
     Indication: FRONTOTEMPORAL DEMENTIA
     Dosage: (5 MG QD), (DF)

REACTIONS (1)
  - DRUG RASH WITH EOSINOPHILIA AND SYSTEMIC SYMPTOMS [None]
